FAERS Safety Report 22687149 (Version 6)
Quarter: 2023Q4

REPORT INFORMATION
  Report Type: Spontaneous
  Country: JP (occurrence: None)
  Receive Date: 20230710
  Receipt Date: 20231102
  Transmission Date: 20240109
  Serious: Yes (Death, Hospitalization, Other)
  Sender: FDA-Public Use
  Company Number: 2023A156083

PATIENT
  Age: 81 Year
  Sex: Male
  Weight: 54 kg

DRUGS (17)
  1. IMFINZI [Suspect]
     Active Substance: DURVALUMAB
     Indication: Bile duct cancer
     Route: 041
     Dates: start: 20230526, end: 20230615
  2. GEMCITABINE HYDROCHLORIDE [Suspect]
     Active Substance: GEMCITABINE HYDROCHLORIDE
     Indication: Bile duct cancer
     Dosage: DOSE UNKNOWN
     Dates: start: 20230526, end: 20230615
  3. CISPLATIN [Suspect]
     Active Substance: CISPLATIN
     Indication: Bile duct cancer
     Dosage: DOSE UNKNOWN
     Dates: start: 20230526, end: 20230615
  4. DAPAGLIFLOZIN [Concomitant]
     Active Substance: DAPAGLIFLOZIN
     Indication: Type 2 diabetes mellitus
     Route: 048
  5. BISOPROLOL [Concomitant]
     Active Substance: BISOPROLOL\BISOPROLOL FUMARATE
     Indication: Acute myocardial infarction
     Route: 048
  6. ROSUVASTATIN [Concomitant]
     Active Substance: ROSUVASTATIN
     Indication: Acute myocardial infarction
     Route: 048
  7. URSODIOL [Concomitant]
     Active Substance: URSODIOL
     Indication: Cholelithiasis
     Route: 048
  8. ESOMEPRAZOLE [Concomitant]
     Active Substance: ESOMEPRAZOLE
     Indication: Acute myocardial infarction
     Route: 048
  9. PRASUGREL HYDROCHLORIDE [Concomitant]
     Active Substance: PRASUGREL HYDROCHLORIDE
     Indication: Acute myocardial infarction
     Route: 048
     Dates: start: 20230403
  10. OLMESARTAN [Concomitant]
     Active Substance: OLMESARTAN
     Indication: Hypertension
     Route: 048
  11. SODIUM FERROUS CITRATE [Concomitant]
     Active Substance: SODIUM FERROUS CITRATE
     Route: 048
  12. MAGNESIUM OXIDE [Concomitant]
     Active Substance: MAGNESIUM OXIDE
     Indication: Pseudomembranous colitis
     Route: 048
  13. PALONOSETRON [Concomitant]
     Active Substance: PALONOSETRON
     Route: 042
     Dates: start: 20230526
  14. DEXAMETHASONE SODIUM PHOSPHATE [Concomitant]
     Active Substance: DEXAMETHASONE SODIUM PHOSPHATE
     Route: 042
     Dates: start: 20230526
  15. VANCOMYCIN HYDROCHLORIDE [Concomitant]
     Active Substance: VANCOMYCIN HYDROCHLORIDE
     Indication: Pseudomembranous colitis
     Route: 048
     Dates: start: 20230601, end: 20230611
  16. MIYA-BM [Concomitant]
     Active Substance: CLOSTRIDIUM BUTYRICUM SPORES STRAIN M-55
     Indication: Pseudomembranous colitis
     Route: 048
     Dates: start: 20230601
  17. CALONAL [Concomitant]
     Active Substance: ACETAMINOPHEN
     Route: 048

REACTIONS (18)
  - Myocardial infarction [Fatal]
  - Haemolytic anaemia [Fatal]
  - Tumour pseudoprogression [Fatal]
  - Hepatic infarction [Fatal]
  - Hepatic infection [Fatal]
  - Cardio-respiratory arrest [Fatal]
  - Arrhythmia [Unknown]
  - Arterial thrombosis [Unknown]
  - Venous thrombosis [Unknown]
  - Biliary fistula [Unknown]
  - Immune-mediated myocarditis [Unknown]
  - Sepsis [Unknown]
  - Multi-organ disorder [Unknown]
  - Hepatic necrosis [Unknown]
  - Volume blood decreased [Unknown]
  - Haemorrhage [Unknown]
  - Myocardial ischaemia [Unknown]
  - Hyperkalaemia [Unknown]

NARRATIVE: CASE EVENT DATE: 20230617
